FAERS Safety Report 11811528 (Version 2)
Quarter: 2016Q1

REPORT INFORMATION
  Report Type: Spontaneous
  Country: US (occurrence: US)
  Receive Date: 20151208
  Receipt Date: 20160122
  Transmission Date: 20160525
  Serious: Yes (Other)
  Sender: FDA-Public Use
  Company Number: US-PFIZER INC-2015431690

PATIENT
  Age: 65 Year
  Sex: Female

DRUGS (4)
  1. LYRICA [Suspect]
     Active Substance: PREGABALIN
     Indication: NEUROPATHY PERIPHERAL
     Dosage: 200 MG, 3X/DAY
     Dates: start: 200706
  2. XALATAN [Suspect]
     Active Substance: LATANOPROST
     Indication: GLAUCOMA
     Dosage: 50 UG, AT NIGHT
     Dates: start: 2000
  3. VISTARIL [Suspect]
     Active Substance: HYDROXYZINE PAMOATE
     Indication: DEPRESSION
     Dosage: 50 MG, UNK
     Dates: start: 200508, end: 2006
  4. LYRICA [Suspect]
     Active Substance: PREGABALIN
     Indication: FIBROMYALGIA
     Dosage: 150 MG, UNK

REACTIONS (1)
  - Blindness [Unknown]
